FAERS Safety Report 14535178 (Version 4)
Quarter: 2018Q1

REPORT INFORMATION
  Report Type: Spontaneous
  Country: IT (occurrence: IT)
  Receive Date: 20180215
  Receipt Date: 20180329
  Transmission Date: 20180509
  Serious: Yes (Other)
  Sender: FDA-Public Use
  Company Number: IT-JNJFOC-20180218360

PATIENT
  Age: 18 Year
  Sex: Female

DRUGS (2)
  1. TACHIFENE [Concomitant]
     Indication: PRODUCT USED FOR UNKNOWN INDICATION
     Route: 065
  2. TOPAMAX [Suspect]
     Active Substance: TOPIRAMATE
     Indication: MIGRAINE
     Route: 048
     Dates: start: 20171005, end: 20180105

REACTIONS (7)
  - Tremor [Unknown]
  - Hallucination [Unknown]
  - Vomiting [Unknown]
  - Photophobia [Unknown]
  - Vertigo [Unknown]
  - Weight decreased [Unknown]
  - Dyspepsia [Unknown]

NARRATIVE: CASE EVENT DATE: 20180105
